FAERS Safety Report 20090238 (Version 1)
Quarter: 2021Q4

REPORT INFORMATION
  Report Type: Spontaneous
  Country: CN (occurrence: CN)
  Receive Date: 20211119
  Receipt Date: 20211119
  Transmission Date: 20220303
  Serious: Yes (Life-Threatening, Hospitalization)
  Sender: FDA-Public Use
  Company Number: CN-BoehringerIngelheim-2021-BI-136929

PATIENT
  Age: 54 Year
  Sex: Female
  Weight: 64 kg

DRUGS (2)
  1. ALTEPLASE [Suspect]
     Active Substance: ALTEPLASE
     Indication: Cerebral infarction
     Route: 042
     Dates: start: 20211025, end: 20211025
  2. ALTEPLASE [Suspect]
     Active Substance: ALTEPLASE
     Indication: Thrombolysis

REACTIONS (2)
  - Blood fibrinogen decreased [Recovered/Resolved]
  - Off label use [Unknown]

NARRATIVE: CASE EVENT DATE: 20211026
